FAERS Safety Report 17140430 (Version 1)
Quarter: 2019Q4

REPORT INFORMATION
  Report Type: Spontaneous
  Country: US (occurrence: US)
  Receive Date: 20191211
  Receipt Date: 20191211
  Transmission Date: 20200122
  Serious: No
  Sender: FDA-Public Use
  Company Number: US-AMGEN-USASP2019203824

PATIENT
  Age: 66 Year
  Sex: Female

DRUGS (1)
  1. PROLIA [Suspect]
     Active Substance: DENOSUMAB
     Indication: OSTEOPOROSIS POSTMENOPAUSAL
     Dosage: 60 MILLIGRAM, Q6MO
     Route: 065
     Dates: start: 20191122

REACTIONS (11)
  - Depression [Unknown]
  - Anxiety [Unknown]
  - Balance disorder [Unknown]
  - Epistaxis [Unknown]
  - Confusional state [Unknown]
  - Asthma [Unknown]
  - Hypersensitivity [Unknown]
  - Hypersomnia [Unknown]
  - Back pain [Unknown]
  - Nasal dryness [Unknown]
  - Arthralgia [Unknown]

NARRATIVE: CASE EVENT DATE: 201911
